FAERS Safety Report 8671561 (Version 2)
Quarter: 2012Q4

REPORT INFORMATION
  Report Type: Report from Study
  Country: US (occurrence: US)
  Receive Date: 20120718
  Receipt Date: 20121115
  Transmission Date: 20130627
  Serious: Yes (Hospitalization)
  Sender: FDA-Public Use
  Company Number: US-US-EMD SERONO, INC.-7146915

PATIENT
  Age: 35 Year
  Sex: Female

DRUGS (4)
  1. REBIF [Suspect]
     Indication: PRODUCT USED FOR UNKNOWN INDICATION
     Dates: start: 20120114, end: 201202
  2. REBIF [Suspect]
     Dates: start: 201203
  3. ALBUTEROL INHALER [Concomitant]
     Indication: ASTHMA
  4. ASMANEX INHALER [Concomitant]
     Indication: ASTHMA

REACTIONS (1)
  - Pneumonia [Recovered/Resolved]
